FAERS Safety Report 19423996 (Version 1)
Quarter: 2021Q2

REPORT INFORMATION
  Report Type: Spontaneous
  Country: CA (occurrence: CA)
  Receive Date: 20210616
  Receipt Date: 20210616
  Transmission Date: 20210717
  Serious: Yes (Other)
  Sender: FDA-Public Use
  Company Number: CA-AUROBINDO-AUR-APL-2021-024622

PATIENT
  Sex: Female

DRUGS (3)
  1. PAROXETINE TABLET [Suspect]
     Active Substance: PAROXETINE
     Dosage: UNK
     Route: 048
  2. LAMICTAL [Suspect]
     Active Substance: LAMOTRIGINE
     Indication: DEPRESSION
     Dosage: UNK
     Route: 048
  3. PAROXETINE TABLET [Suspect]
     Active Substance: PAROXETINE
     Indication: DEPRESSION
     Dosage: UNK
     Route: 048

REACTIONS (9)
  - Amnesia [Recovered/Resolved]
  - Abdominal pain [Recovered/Resolved]
  - Disturbance in attention [Recovered/Resolved]
  - Cerebral disorder [Recovered/Resolved]
  - Irritable bowel syndrome [Recovered/Resolved]
  - Product used for unknown indication [Recovered/Resolved]
  - Abnormal dreams [Recovered/Resolved]
  - Poisoning [Recovered/Resolved]
  - Thinking abnormal [Recovered/Resolved]
